FAERS Safety Report 4763902-2 (Version None)
Quarter: 2005Q3

REPORT INFORMATION
  Report Type: 
  Country: None (occurrence: None)
  Receive Date: 20050906
  Receipt Date: 20050822
  Transmission Date: 20060218
  Serious: Yes (Hospitalization)
  Sender: FDA-Public Use
  Company Number: 2005SP002483

PATIENT
  Age: 68 Year
  Sex: Female

DRUGS (19)
  1. LUNESTA [Suspect]
     Indication: INSOMNIA
     Dosage: 2MG; 1X; ORAL
     Route: 048
     Dates: start: 20050801, end: 20050801
  2. PIOGLITAZONE HCL [Concomitant]
  3. HYDROCHLORIDE [Concomitant]
  4. ATIVAN [Concomitant]
  5. CARDIZEM [Concomitant]
  6. DOXAZOSIN [Concomitant]
  7. VITAMINS [Concomitant]
  8. CLONIDINE [Concomitant]
  9. GLUCOPHAGE [Concomitant]
  10. GLYBURIDE [Concomitant]
  11. HYDROCHLOROTHIAZIDE [Concomitant]
  12. PROPRANOLOL [Concomitant]
  13. LEXAPRO [Concomitant]
  14. MAGNESIUM OXIDE [Concomitant]
  15. NEURONTIN [Concomitant]
  16. PREVACID [Concomitant]
  17. RISPERDAL [Concomitant]
  18. SIMVASTATIN [Concomitant]
  19. AMBIEN [Concomitant]

REACTIONS (4)
  - ASTHENIA [None]
  - DELIRIUM [None]
  - DYSSTASIA [None]
  - HEADACHE [None]
